FAERS Safety Report 24698250 (Version 2)
Quarter: 2025Q1

REPORT INFORMATION
  Report Type: Spontaneous
  Country: JP (occurrence: JP)
  Receive Date: 20241204
  Receipt Date: 20250325
  Transmission Date: 20250409
  Serious: Yes (Other)
  Sender: BOEHRINGER INGELHEIM
  Company Number: JP-NBI-2024-BI-065194

PATIENT
  Age: 36 Year
  Sex: Male
  Weight: 55.8 kg

DRUGS (5)
  1. SPEVIGO [Suspect]
     Active Substance: SPESOLIMAB-SBZO
     Indication: Pustular psoriasis
     Dates: start: 20241004, end: 20241004
  2. OLOPATADINE HYDROCHLORIDE [Concomitant]
     Active Substance: OLOPATADINE HYDROCHLORIDE
     Indication: Pustular psoriasis
     Dates: start: 20241005
  3. ANTEBATE:OINTMENT [Concomitant]
     Indication: Pustular psoriasis
     Dates: start: 20241003
  4. LOCOID [Concomitant]
     Active Substance: HYDROCORTISONE BUTYRATE
     Indication: Pustular psoriasis
     Dates: start: 20241003
  5. RINDERON VG [Concomitant]
     Active Substance: BETAMETHASONE VALERATE\GENTAMICIN SULFATE
     Indication: Pustular psoriasis
     Dates: start: 20241003

REACTIONS (2)
  - Drug-induced liver injury [Recovered/Resolved]
  - Lymphomatoid papulosis [Recovering/Resolving]

NARRATIVE: CASE EVENT DATE: 20241008
